FAERS Safety Report 5728102-8 (Version None)
Quarter: 2008Q2

REPORT INFORMATION
  Report Type: 
  Country: None (occurrence: None)
  Receive Date: 20080505
  Receipt Date: 20080423
  Transmission Date: 20081010
  Serious: Yes (Other)
  Sender: FDA-Public Use
  Company Number: US-PFIZER INC-2008037258

PATIENT
  Sex: Female
  Weight: 77.272 kg

DRUGS (7)
  1. CHANTIX [Suspect]
     Indication: SMOKING CESSATION THERAPY
  2. XANAX [Suspect]
     Indication: MOOD SWINGS
  3. XANAX [Suspect]
     Indication: CRYING
  4. XANAX [Suspect]
     Indication: HALLUCINATION, AUDITORY
  5. VICODIN [Concomitant]
     Indication: BACK PAIN
  6. SOMA [Concomitant]
     Indication: BACK PAIN
  7. ALLERGY MEDICATION [Concomitant]

REACTIONS (15)
  - AGGRESSION [None]
  - AMNESIA [None]
  - BIPOLAR DISORDER [None]
  - CRYING [None]
  - DISTURBANCE IN ATTENTION [None]
  - DRUG INEFFECTIVE [None]
  - DYSARTHRIA [None]
  - HALLUCINATION, AUDITORY [None]
  - LOSS OF EMPLOYMENT [None]
  - MENTAL DISORDER [None]
  - MIGRAINE [None]
  - MOOD SWINGS [None]
  - SUICIDAL IDEATION [None]
  - TREMOR [None]
  - VISUAL DISTURBANCE [None]
